FAERS Safety Report 4441068-6 (Version None)
Quarter: 2004Q3

REPORT INFORMATION
  Report Type: 
  Country: None (occurrence: None)
  Receive Date: 20040902
  Receipt Date: 20040902
  Transmission Date: 20050211
  Serious: No
  Sender: FDA-Public Use
  Company Number: None

PATIENT
  Age: 77 Year
  Sex: Female
  Weight: 45.3597 kg

DRUGS (6)
  1. IRON DEXTRAN [Suspect]
     Indication: ANAEMIA
     Dosage: 1000MG ONE TIME INTRAVENOUS
     Route: 042
     Dates: start: 20040713, end: 20040713
  2. EPOGEN [Concomitant]
  3. COUMADIN [Concomitant]
  4. COZAAR [Concomitant]
  5. SYNTHROID [Concomitant]
  6. ARIMIDEX [Concomitant]

REACTIONS (3)
  - COMA [None]
  - CONVULSION [None]
  - GASTRIC DISORDER [None]
